FAERS Safety Report 14275641 (Version 1)
Quarter: 2017Q4

REPORT INFORMATION
  Report Type: Spontaneous
  Country: US (occurrence: US)
  Receive Date: 20171212
  Receipt Date: 20171212
  Transmission Date: 20180321
  Serious: Yes (Other)
  Sender: FDA-Public Use
  Company Number: US-ROCHE-2033595

PATIENT
  Age: 78 Year
  Sex: Female

DRUGS (1)
  1. ACTEMRA [Suspect]
     Active Substance: TOCILIZUMAB
     Indication: RHEUMATOID ARTHRITIS
     Route: 058
     Dates: start: 20171122, end: 20171122

REACTIONS (8)
  - Tremor [Unknown]
  - Personality change [Unknown]
  - Chills [Unknown]
  - Hyperhidrosis [Unknown]
  - Crying [Unknown]
  - Hot flush [Unknown]
  - Suicidal ideation [Unknown]
  - Anxiety [Unknown]

NARRATIVE: CASE EVENT DATE: 20171122
